FAERS Safety Report 10606221 (Version 1)
Quarter: 2014Q4

REPORT INFORMATION
  Report Type: Spontaneous
  Country: US (occurrence: None)
  Receive Date: 20141121
  Receipt Date: 20141121
  Transmission Date: 20150529
  Serious: Yes (Other)
  Sender: FDA-Public Use
  Company Number: US-20140022

PATIENT
  Age: 24 Year
  Sex: Female
  Weight: 75.5 kg

DRUGS (1)
  1. DOTAREM [Suspect]
     Active Substance: GADOTERATE MEGLUMINE
     Indication: NUCLEAR MAGNETIC RESONANCE IMAGING BRAIN
     Route: 042
     Dates: start: 20141029, end: 20141029

REACTIONS (8)
  - Heart rate increased [None]
  - Dry throat [None]
  - Cough [None]
  - Throat irritation [None]
  - Blood pressure increased [None]
  - Pruritus [None]
  - Dyspnoea [None]
  - Dysphagia [None]

NARRATIVE: CASE EVENT DATE: 20141029
